FAERS Safety Report 18502284 (Version 1)
Quarter: 2020Q4

REPORT INFORMATION
  Report Type: Other
  Country: US (occurrence: US)
  Receive Date: 20201113
  Receipt Date: 20201113
  Transmission Date: 20210114
  Serious: No
  Sender: FDA-Public Use
  Company Number: US-LEADIANT BIOSCIENCES INC-2020STPI000187

PATIENT
  Sex: Male

DRUGS (18)
  1. MYFORTIC [Concomitant]
     Active Substance: MYCOPHENOLATE SODIUM
  2. MAG OXIDE [Concomitant]
     Active Substance: MAGNESIUM OXIDE
  3. KEPPRA [Concomitant]
     Active Substance: LEVETIRACETAM
  4. NOVOLOG [Concomitant]
     Active Substance: INSULIN ASPART
  5. PEPCID [ALUMINIUM HYDROXIDE;MAGNESIUM TRISILICATE;SODIUM ALGINATE] [Concomitant]
  6. MULTI VIT [Concomitant]
     Active Substance: VITAMINS
  7. ANDROGEL [Concomitant]
     Active Substance: TESTOSTERONE
  8. SYNTHROID [Concomitant]
     Active Substance: LEVOTHYROXINE SODIUM
  9. STOOL SOFTENER (DOCUSATE) [Concomitant]
     Active Substance: DOCUSATE
  10. OMEPRAZOLE. [Concomitant]
     Active Substance: OMEPRAZOLE
  11. ASPIRIN [ACETYLSALICYLIC ACID] [Concomitant]
     Active Substance: ASPIRIN
  12. PREDNISONE. [Concomitant]
     Active Substance: PREDNISONE
  13. PROCYSBI [Concomitant]
     Active Substance: CYSTEAMINE BITARTRATE
  14. NOCOLD-SR [Concomitant]
  15. BACTRIM [Concomitant]
     Active Substance: SULFAMETHOXAZOLE\TRIMETHOPRIM
  16. CYSTARAN [Suspect]
     Active Substance: CYSTEAMINE HYDROCHLORIDE
     Indication: CYSTINOSIS
     Dosage: 1 DROP EVERY HOUR WHILE AWAKE INTO AFFETCED EYES
     Route: 047
     Dates: start: 20140902
  17. PROGRAF [Concomitant]
     Active Substance: TACROLIMUS
  18. METOPROLOL. [Concomitant]
     Active Substance: METOPROLOL

REACTIONS (1)
  - Eye irritation [Not Recovered/Not Resolved]
